FAERS Safety Report 13446562 (Version 1)
Quarter: 2017Q2

REPORT INFORMATION
  Report Type: Spontaneous
  Country: US (occurrence: US)
  Receive Date: 20170414
  Receipt Date: 20170414
  Transmission Date: 20170830
  Serious: Yes (Hospitalization)
  Sender: FDA-Public Use
  Company Number: None

PATIENT
  Age: 84 Year
  Sex: Male
  Weight: 81.65 kg

DRUGS (1)
  1. VANCOMYCIN 10GM FRESENIUS KABI [Suspect]
     Active Substance: VANCOMYCIN
     Indication: OSTEOMYELITIS
     Route: 042
     Dates: start: 20170406, end: 20170410

REACTIONS (2)
  - Fluid retention [None]
  - Blood creatinine increased [None]

NARRATIVE: CASE EVENT DATE: 20170410
